FAERS Safety Report 11359306 (Version 2)
Quarter: 2015Q3

REPORT INFORMATION
  Report Type: Spontaneous
  Country: US (occurrence: DE)
  Receive Date: 20150807
  Receipt Date: 20150820
  Transmission Date: 20151125
  Serious: Yes (Hospitalization, Other)
  Sender: FDA-Public Use
  Company Number: DE-FRI-1000064728

PATIENT
  Sex: Male
  Weight: 80 kg

DRUGS (5)
  1. ROFLUMILAST [Interacting]
     Active Substance: ROFLUMILAST
     Dosage: 500 MCG
     Route: 048
  2. ROFLUMILAST [Suspect]
     Active Substance: ROFLUMILAST
     Indication: CHRONIC OBSTRUCTIVE PULMONARY DISEASE
     Dosage: 500 MCG
     Route: 048
     Dates: start: 20130703, end: 201506
  3. DICLOFENAC [Concomitant]
     Active Substance: DICLOFENAC
     Indication: ARTHRALGIA
  4. TORSEMIDE. [Concomitant]
     Active Substance: TORSEMIDE
  5. ARCOXIA [Interacting]
     Active Substance: ETORICOXIB
     Indication: ARTHRALGIA
     Dates: start: 201504, end: 201506

REACTIONS (8)
  - Weight decreased [Recovered/Resolved]
  - Headache [Recovering/Resolving]
  - Vomiting [Recovering/Resolving]
  - Muscle atrophy [Unknown]
  - Decreased appetite [Recovering/Resolving]
  - Suicidal ideation [Recovered/Resolved]
  - Drug interaction [Unknown]
  - Arthralgia [Unknown]

NARRATIVE: CASE EVENT DATE: 201504
